FAERS Safety Report 8586172-6 (Version None)
Quarter: 2012Q3

REPORT INFORMATION
  Report Type: 
  Country: None (occurrence: None)
  Receive Date: 20120810
  Receipt Date: 20120426
  Transmission Date: 20120928
  Serious: Yes (Hospitalization)
  Sender: FDA-Public Use
  Company Number: DE-VIIV HEALTHCARE LIMITED-B0796766A

PATIENT
  Sex: Male
  Weight: 66 kg

DRUGS (4)
  1. CANDESARTAN CILEXETIL [Concomitant]
     Dosage: 8MG PER DAY
     Dates: start: 20110414
  2. MARAVIROC [Suspect]
     Indication: HIV INFECTION
     Dosage: 300MG TWICE PER DAY
     Route: 048
     Dates: start: 20091112
  3. RAMIPRIL [Concomitant]
     Dosage: 10MG PER DAY
     Dates: start: 20100216
  4. HYDROCHLOROTHIAZIDE [Concomitant]
     Dosage: 125MG PER DAY
     Dates: start: 20120113

REACTIONS (1)
  - MYOCARDIAL INFARCTION [None]
